FAERS Safety Report 7478544-8 (Version None)
Quarter: 2011Q2

REPORT INFORMATION
  Report Type: 
  Country: None (occurrence: None)
  Receive Date: 20110513
  Receipt Date: 20110504
  Transmission Date: 20111010
  Serious: Yes (Hospitalization)
  Sender: FDA-Public Use
  Company Number: FR-ABBOTT-11P-056-0715828-00

PATIENT
  Age: 37 Year
  Sex: Female
  Weight: 68 kg

DRUGS (3)
  1. HUMIRA [Suspect]
     Indication: CROHN'S DISEASE
     Dosage: BASELINE
     Route: 058
     Dates: start: 20090414, end: 20090414
  2. HUMIRA [Suspect]
     Route: 058
     Dates: end: 20110322
  3. MELPHALAN HYDROCHLORIDE [Concomitant]
     Indication: CROHN'S DISEASE
     Dates: start: 20090301, end: 20090414

REACTIONS (1)
  - ILEAL STENOSIS [None]
